FAERS Safety Report 7663105-8 (Version None)
Quarter: 2011Q3

REPORT INFORMATION
  Report Type: 
  Country: None (occurrence: None)
  Receive Date: 20110805
  Receipt Date: 20100915
  Transmission Date: 20111222
  Serious: No
  Sender: FDA-Public Use
  Company Number: US-ABBOTT-10P-163-0672099-00

PATIENT
  Sex: Female
  Weight: 62.652 kg

DRUGS (8)
  1. ATENOLOL [Concomitant]
     Indication: HYPERTENSION
  2. LOVAZA [Concomitant]
     Indication: MEDICAL DIET
  3. VITAMIN TAB [Concomitant]
     Indication: VITAMIN SUPPLEMENTATION
  4. NIASPAN [Suspect]
     Indication: BLOOD CHOLESTEROL INCREASED
     Dates: start: 20100801, end: 20100901
  5. CALCIUM ACETATE [Concomitant]
     Indication: MINERAL SUPPLEMENTATION
  6. LAMIPRIL [Concomitant]
     Indication: HYPERTENSION
  7. INDAPAMIDE [Concomitant]
     Indication: HYPERTENSION
  8. NIASPAN [Suspect]
     Dosage: ONE HALF TABLET DAILY
     Dates: start: 20100901

REACTIONS (8)
  - HYPERHIDROSIS [None]
  - ARTHRALGIA [None]
  - PAIN IN EXTREMITY [None]
  - RASH [None]
  - PAIN [None]
  - FLUSHING [None]
  - WRONG TECHNIQUE IN DRUG USAGE PROCESS [None]
  - PRURITUS [None]
